FAERS Safety Report 21012588 (Version 1)
Quarter: 2022Q2

REPORT INFORMATION
  Report Type: Spontaneous
  Country: US (occurrence: US)
  Receive Date: 20220627
  Receipt Date: 20220627
  Transmission Date: 20220721
  Serious: No
  Sender: FDA-Public Use
  Company Number: US-DSJP-DSU-2022-121838AA

PATIENT
  Age: 62 Year
  Sex: Female

DRUGS (3)
  1. TURALIO [Suspect]
     Active Substance: PEXIDARTINIB HYDROCHLORIDE
     Indication: Product used for unknown indication
     Dosage: 800 MG
     Route: 065
  2. TURALIO [Suspect]
     Active Substance: PEXIDARTINIB HYDROCHLORIDE
     Dosage: 600 MG
     Route: 065
  3. TURALIO [Suspect]
     Active Substance: PEXIDARTINIB HYDROCHLORIDE
     Dosage: 800 MG
     Route: 065

REACTIONS (2)
  - Hair colour changes [Unknown]
  - Adverse event [Recovered/Resolved]
